FAERS Safety Report 7794513-2 (Version None)
Quarter: 2011Q3

REPORT INFORMATION
  Report Type: 
  Country: None (occurrence: None)
  Receive Date: 20110930
  Receipt Date: 20110913
  Transmission Date: 20111222
  Serious: Yes (Other)
  Sender: FDA-Public Use
  Company Number: 2011SP043670

PATIENT
  Age: 61 Year
  Sex: Female

DRUGS (4)
  1. BOCEPREVIR (SCH-503034) [Suspect]
     Indication: HEPATITIS C
     Dosage: PO
     Route: 048
     Dates: start: 20110812, end: 20110912
  2. RIBAVIRIN [Suspect]
     Indication: PRODUCT USED FOR UNKNOWN INDICATION
     Dosage: 1000 MG;QD;
     Dates: start: 20110715
  3. INDAPAMIDA [Concomitant]
  4. PEG-INTRON [Suspect]
     Indication: PRODUCT USED FOR UNKNOWN INDICATION
     Dosage: 100 MCG;QW;
     Dates: start: 20110715

REACTIONS (4)
  - ODYNOPHAGIA [None]
  - DYSPHAGIA [None]
  - EPIGLOTTIC OEDEMA [None]
  - LARYNGEAL ULCERATION [None]
